FAERS Safety Report 7180462-X (Version None)
Quarter: 2010Q4

REPORT INFORMATION
  Report Type: 
  Country: None (occurrence: None)
  Receive Date: 20101221
  Receipt Date: 20101216
  Transmission Date: 20110411
  Serious: Yes (Hospitalization)
  Sender: FDA-Public Use
  Company Number: BE-ABBOTT-10P-013-0690848-00

PATIENT
  Sex: Female
  Weight: 60 kg

DRUGS (9)
  1. HUMIRA [Suspect]
     Indication: RHEUMATOID ARTHRITIS
     Dates: start: 20090803
  2. DICLOFENAC [Concomitant]
     Indication: PRODUCT USED FOR UNKNOWN INDICATION
  3. LORAZEPAM [Concomitant]
     Indication: PRODUCT USED FOR UNKNOWN INDICATION
  4. CELEBREX [Concomitant]
     Indication: PRODUCT USED FOR UNKNOWN INDICATION
  5. FOLIC ACID [Concomitant]
     Indication: PRODUCT USED FOR UNKNOWN INDICATION
  6. STEOVIT D3 [Concomitant]
     Indication: PRODUCT USED FOR UNKNOWN INDICATION
  7. ZALDIAR [Concomitant]
  8. BUSCOPAN [Concomitant]
  9. CALCIUM SUPPLEMENTS [Concomitant]
     Indication: PRODUCT USED FOR UNKNOWN INDICATION

REACTIONS (11)
  - ABDOMINAL PAIN LOWER [None]
  - CYSTITIS [None]
  - DIVERTICULAR PERFORATION [None]
  - DIVERTICULITIS [None]
  - DYSPEPSIA [None]
  - GASTRITIS [None]
  - GASTROINTESTINAL MOTILITY DISORDER [None]
  - HEADACHE [None]
  - NEPHROLITHIASIS [None]
  - PROCTALGIA [None]
  - WEIGHT DECREASED [None]
